FAERS Safety Report 10387457 (Version 1)
Quarter: 2014Q1

REPORT INFORMATION
  Report Type: Spontaneous
  Country: US (occurrence: None)
  Receive Date: 20140306
  Receipt Date: 20140306
  Transmission Date: 20141002
  Serious: Yes (Other)
  Sender: FDA-Public Use
  Company Number: 163-21880-13103784

PATIENT
  Age: 51 Year
  Sex: Male

DRUGS (11)
  1. REVLIMID (LENALIDOMIDE) (CAPSULES) [Suspect]
     Indication: PLASMA CELL MYELOMA
     Route: 048
     Dates: start: 20130521
  2. DEXAMETHASONE [Concomitant]
  3. FAMOTIDINE [Concomitant]
  4. GABAPENTIN [Concomitant]
  5. METFORMIN HCL (METFORMIN HYDROCHLORIDE) [Concomitant]
  6. SPIRONOLACTONE [Concomitant]
  7. VITAMIN B COMPLEX (B KOMPLEX ^LECIVA^) [Concomitant]
  8. POTASSIUM CHLORIDE [Concomitant]
  9. ESSENTIAL MAN [Concomitant]
  10. TRAMADOL HCL (TRAMADOL HYDROCHLORIDE) [Concomitant]
  11. FINASTERIDE [Concomitant]

REACTIONS (1)
  - Deep vein thrombosis [None]
